FAERS Safety Report 25256382 (Version 1)
Quarter: 2025Q2

REPORT INFORMATION
  Report Type: Spontaneous
  Country: US (occurrence: None)
  Receive Date: 20250430
  Receipt Date: 20250430
  Transmission Date: 20250716
  Serious: No
  Sender: FDA-CTU
  Company Number: None

PATIENT
  Age: 37 Year
  Sex: Female
  Weight: 96.75 kg

DRUGS (3)
  1. ICY HOT ORIGINAL FOAM [Suspect]
     Active Substance: MENTHOL
     Indication: Arthralgia
     Dosage: OTHER QUANTITY : 44.3 1 ML;?FREQUENCY : DAILY;?
     Route: 061
     Dates: start: 20250429, end: 20250429
  2. UNSPECIFIED INGREDIENT [Concomitant]
     Active Substance: UNSPECIFIED INGREDIENT
  3. FLUOXETINE [Concomitant]
     Active Substance: FLUOXETINE HYDROCHLORIDE

REACTIONS (5)
  - Application site pain [None]
  - Application site erythema [None]
  - Application site warmth [None]
  - Chemical burn [None]
  - Rash erythematous [None]

NARRATIVE: CASE EVENT DATE: 20250429
